FAERS Safety Report 12263621 (Version 2)
Quarter: 2016Q2

REPORT INFORMATION
  Report Type: Report from Study
  Country: HN (occurrence: HN)
  Receive Date: 20160413
  Receipt Date: 20160419
  Transmission Date: 20160815
  Serious: Yes (Death, Hospitalization, Other)
  Sender: FDA-Public Use
  Company Number: PHHY2016HN049203

PATIENT
  Age: 52 Year
  Sex: Female
  Weight: 64.5 kg

DRUGS (2)
  1. GLIVEC [Suspect]
     Active Substance: IMATINIB MESYLATE
     Indication: CHRONIC MYELOID LEUKAEMIA
     Dosage: 400 MG, QD
     Route: 048
     Dates: start: 20121017, end: 20160204
  2. PROPANOLOL [Concomitant]
     Active Substance: PROPRANOLOL HYDROCHLORIDE
     Indication: HYPERTHYROIDISM
     Route: 065

REACTIONS (17)
  - Acute respiratory distress syndrome [Fatal]
  - Chronic myeloid leukaemia recurrent [Unknown]
  - White blood cell count decreased [Unknown]
  - Nausea [Unknown]
  - Diarrhoea [Unknown]
  - Pancytopenia [Unknown]
  - Bone pain [Unknown]
  - Oedema peripheral [Unknown]
  - Haemoglobin decreased [Unknown]
  - Depression [Unknown]
  - Malaise [Unknown]
  - Pyrexia [Unknown]
  - Headache [Unknown]
  - Lymphocyte count increased [Unknown]
  - Epistaxis [Unknown]
  - Platelet count decreased [Unknown]
  - Abdominal pain upper [Unknown]

NARRATIVE: CASE EVENT DATE: 20160204
